FAERS Safety Report 25767838 (Version 1)
Quarter: 2025Q3

REPORT INFORMATION
  Report Type: Spontaneous
  Country: US (occurrence: None)
  Receive Date: 20250905
  Receipt Date: 20250905
  Transmission Date: 20251020
  Serious: Yes (Hospitalization, Other)
  Sender: FDA-CTU
  Company Number: None

PATIENT
  Age: 74 Year
  Sex: Female
  Weight: 54 kg

DRUGS (1)
  1. VISMODEGIB [Suspect]
     Active Substance: VISMODEGIB
     Indication: Basal cell carcinoma
     Dates: start: 20250101, end: 20250827

REACTIONS (3)
  - Guillain-Barre syndrome [None]
  - CSF protein increased [None]
  - Therapeutic product effect incomplete [None]

NARRATIVE: CASE EVENT DATE: 20250827
